FAERS Safety Report 7881583 (Version 3)
Quarter: 2012Q4

REPORT INFORMATION
  Report Type: Report from Study
  Country: DE (occurrence: DE)
  Receive Date: 20110401
  Receipt Date: 20121203
  Transmission Date: 20130627
  Serious: Yes (Death, Life-Threatening)
  Sender: FDA-Public Use
  Company Number: DE-PFIZER INC-2011050040

PATIENT
  Age: 52 Year
  Sex: Female
  Weight: 89 kg

DRUGS (9)
  1. GEMTUZUMAB OZOGAMICIN [Suspect]
     Indication: ACUTE MYELOID LEUKEMIA
     Dosage: 5.4 mg, cyclic day 1
     Route: 042
     Dates: start: 20110223, end: 20110223
  2. ZAVEDOS [Suspect]
     Indication: ACUTE MYELOID LEUKEMIA
     Dosage: 22 mg, cyclic days 1, 3, 5
     Route: 042
     Dates: start: 20110223, end: 20110227
  3. CYTARABINE [Suspect]
     Indication: ACUTE MYELOID LEUKEMIA
     Dosage: 180 mg, cyclic days 1-7
     Dates: start: 20110223, end: 20110301
  4. ETOPOSIDE [Suspect]
     Indication: ACUTE MYELOID LEUKEMIA
     Dosage: 180 mg, cyclic days 1-3
     Route: 042
     Dates: start: 20110223, end: 20110225
  5. ATRA [Suspect]
     Indication: ACUTE MYELOID LEUKEMIA
     Dosage: 80 mg, cyclic days 6-8
     Route: 042
     Dates: start: 20110228
  6. ATRA [Suspect]
     Dosage: 80 mg, cyclic days 9-21
     Dates: start: 20110228
  7. POSACONAZOLE [Concomitant]
     Dosage: 300 mg, 2x/day
     Route: 042
     Dates: start: 20110301, end: 20110302
  8. POSACONAZOLE [Concomitant]
     Dosage: 300 mg, 1x/day
     Dates: start: 20110302
  9. MSI [Concomitant]
     Dosage: UNK
     Route: 042
     Dates: start: 20110304

REACTIONS (10)
  - Sepsis [Fatal]
  - Septic shock [None]
  - Colitis [None]
  - Metabolic acidosis [None]
  - Multi-organ failure [None]
  - Renal failure [None]
  - Cerebral haemorrhage [None]
  - Aspartate aminotransferase increased [None]
  - Alanine aminotransferase increased [None]
  - Blood bilirubin increased [None]
